FAERS Safety Report 7797020-6 (Version None)
Quarter: 2011Q4

REPORT INFORMATION
  Report Type: 
  Country: None (occurrence: None)
  Receive Date: 20111005
  Receipt Date: 20111003
  Transmission Date: 20120403
  Serious: No
  Sender: FDA-Public Use
  Company Number: US-PFIZER INC-2011236011

PATIENT
  Sex: Female
  Weight: 74.38 kg

DRUGS (1)
  1. LIPITOR [Suspect]
     Indication: BLOOD CHOLESTEROL INCREASED
     Dosage: 40 MG, ONCE A DAY
     Route: 048
     Dates: start: 19980101, end: 20020101

REACTIONS (1)
  - DRUG INEFFECTIVE [None]
